FAERS Safety Report 25083828 (Version 3)
Quarter: 2025Q1

REPORT INFORMATION
  Report Type: Spontaneous
  Country: GB (occurrence: GB)
  Receive Date: 20250317
  Receipt Date: 20250331
  Transmission Date: 20250409
  Serious: Yes (Life-Threatening, Hospitalization)
  Sender: MYLAN
  Company Number: GB-MYLANLABS-2025M1021177

PATIENT
  Sex: Male

DRUGS (25)
  1. ARIPIPRAZOLE [Suspect]
     Active Substance: ARIPIPRAZOLE
     Indication: Schizophrenia
  2. OLANZAPINE [Suspect]
     Active Substance: OLANZAPINE
     Indication: Schizophrenia
  3. OLANZAPINE [Suspect]
     Active Substance: OLANZAPINE
  4. OLANZAPINE [Suspect]
     Active Substance: OLANZAPINE
     Dosage: 5 MILLIGRAM, BID
     Dates: start: 20210219, end: 20210301
  5. AMISULPRIDE [Suspect]
     Active Substance: AMISULPRIDE
     Indication: Schizophrenia
     Dosage: 50 MILLIGRAM, BID
     Dates: start: 20210310
  6. AMISULPRIDE [Suspect]
     Active Substance: AMISULPRIDE
     Dosage: 100 MILLIGRAM, BID; DOSE INCREASED
     Dates: start: 20210317, end: 20210421
  7. AMISULPRIDE [Suspect]
     Active Substance: AMISULPRIDE
     Dosage: 50 MILLIGRAM, BID
     Dates: start: 2021, end: 2021
  8. AMISULPRIDE [Suspect]
     Active Substance: AMISULPRIDE
     Dosage: 100 MILLIGRAM, BID
     Dates: start: 2021, end: 2021
  9. QUETIAPINE [Suspect]
     Active Substance: QUETIAPINE
     Indication: Schizophrenia
     Dosage: 100 MILLIGRAM, BID
     Dates: start: 20210604, end: 2021
  10. QUETIAPINE [Suspect]
     Active Substance: QUETIAPINE
     Dosage: 400 MILLIGRAM, QD; THERAPY REINITIATED
     Dates: start: 20211105, end: 20211122
  11. QUETIAPINE [Suspect]
     Active Substance: QUETIAPINE
     Dosage: 200 MILLIGRAM, BID
     Dates: start: 20220314, end: 20220324
  12. RISPERIDONE [Suspect]
     Active Substance: RISPERIDONE
     Indication: Schizophrenia
     Dosage: 1 MILLIGRAM, BID
     Dates: start: 20211020, end: 2021
  13. RISPERIDONE [Suspect]
     Active Substance: RISPERIDONE
     Dosage: 2 MILLIGRAM; DOSE INCREASED
     Dates: start: 2021, end: 2021
  14. FLUPENTIXOL [Suspect]
     Active Substance: FLUPENTIXOL
     Indication: Schizophrenia
     Dosage: 9 MILLIGRAM, QD
     Dates: start: 20220124, end: 20220131
  15. LURASIDONE [Suspect]
     Active Substance: LURASIDONE
     Indication: Schizophrenia
     Dosage: 18.5 MILLIGRAM, QD
     Dates: start: 20220324
  16. LURASIDONE [Suspect]
     Active Substance: LURASIDONE
     Dosage: 55.5 MILLIGRAM, QD
     Dates: start: 2022, end: 20220406
  17. CARIPRAZINE [Suspect]
     Active Substance: CARIPRAZINE
     Indication: Schizophrenia
     Dosage: 1.5 MILLIGRAM, QD
     Dates: start: 2022, end: 2022
  18. CHLORPROMAZINE [Suspect]
     Active Substance: CHLORPROMAZINE
     Indication: Schizophrenia
     Dosage: 250 MILLIGRAM, QD
     Dates: start: 2022
  19. CHLORPROMAZINE [Suspect]
     Active Substance: CHLORPROMAZINE
     Dosage: 350 MILLIGRAM, QD; INCREASED
     Dates: start: 20220622, end: 20220707
  20. CHLORPROMAZINE [Suspect]
     Active Substance: CHLORPROMAZINE
     Dosage: 50 MILLIGRAM, QD; THERAPY REINITIATED
     Dates: start: 20220818, end: 20220901
  21. CHLORPROMAZINE [Suspect]
     Active Substance: CHLORPROMAZINE
     Dosage: 75 MILLIGRAM, QD; DOSE INCREASED
     Dates: start: 20220901, end: 20221020
  22. CHLORPROMAZINE [Suspect]
     Active Substance: CHLORPROMAZINE
     Dosage: 100 MILLIGRAM, QD; FURTHER INCREASED
     Dates: start: 20221020
  23. CHLORPROMAZINE [Suspect]
     Active Substance: CHLORPROMAZINE
     Dosage: 200 MILLIGRAM, QD; DOSE FURTHER INCREASED
     Dates: end: 20230402
  24. CHLORPROMAZINE [Suspect]
     Active Substance: CHLORPROMAZINE
     Dosage: 175 MILLIGRAM, QD; DOSE DECREASED
     Dates: start: 20230402, end: 20230613
  25. ZUCLOPENTHIXOL [Suspect]
     Active Substance: ZUCLOPENTHIXOL
     Indication: Schizophrenia
     Dosage: 20 MILLIGRAM, QD
     Dates: start: 20220713, end: 20220721

REACTIONS (3)
  - Blood creatine phosphokinase increased [Recovered/Resolved]
  - Drug ineffective [Unknown]
  - Treatment noncompliance [Unknown]

NARRATIVE: CASE EVENT DATE: 20210101
